FAERS Safety Report 9239626 (Version 2)
Quarter: 2013Q2

REPORT INFORMATION
  Report Type: Spontaneous
  Country: US (occurrence: US)
  Receive Date: 20130418
  Receipt Date: 20130619
  Transmission Date: 20140414
  Serious: No
  Sender: FDA-Public Use
  Company Number: US-009507513-1304USA008968

PATIENT
  Age: 58 Year
  Sex: Male
  Weight: 90.7 kg

DRUGS (4)
  1. CLARITIN-D-24 [Suspect]
     Indication: SINUS CONGESTION
     Dosage: 10 MG, ONCE
     Route: 048
     Dates: start: 20130315, end: 20130315
  2. CLARITIN-D-24 [Suspect]
     Indication: RHINORRHOEA
  3. CLARITIN-D-24 [Suspect]
     Indication: NASOPHARYNGITIS
  4. CLARITIN-D-24 [Suspect]
     Indication: POOR QUALITY SLEEP

REACTIONS (2)
  - Drug ineffective [Unknown]
  - Off label use [Unknown]
